FAERS Safety Report 11473832 (Version 1)
Quarter: 2015Q3

REPORT INFORMATION
  Report Type: Spontaneous
  Country: US (occurrence: None)
  Receive Date: 20150908
  Receipt Date: 20150908
  Transmission Date: 20151125
  Serious: Yes (Other)
  Sender: FDA-Public Use
  Company Number: None

PATIENT
  Age: 72 Year
  Sex: Male
  Weight: 95.26 kg

DRUGS (14)
  1. CURRY POWDER [Concomitant]
  2. SPROUTS LUNG SUPPORT [Concomitant]
  3. GLUCOSAMINE [Concomitant]
     Active Substance: GLUCOSAMINE
  4. GINGER. [Concomitant]
     Active Substance: GINGER
  5. LOSARTAN. [Concomitant]
     Active Substance: LOSARTAN
  6. IPRATROPIUM BROMIDE/ALBUTEROL SULFATE [Concomitant]
     Active Substance: ALBUTEROL SULFATE\IPRATROPIUM BROMIDE
  7. TUDORZA PRESSAIR [Suspect]
     Active Substance: ACLIDINIUM BROMIDE
     Indication: ASTHMA
     Dosage: 400 UG 1 PUF
     Route: 055
     Dates: start: 20150826, end: 20150827
  8. LEVOTHYROXINE. [Concomitant]
     Active Substance: LEVOTHYROXINE
  9. HYDROCHLOROT [Concomitant]
     Active Substance: HYDROCHLOROTHIAZIDE
  10. TURMERIC [Concomitant]
     Active Substance: TURMERIC
  11. BLACK PEPPER. [Concomitant]
     Active Substance: BLACK PEPPER
  12. SUPER D VITAMIN WITH MINERALS [Concomitant]
  13. SAW PALMETTO [Concomitant]
     Active Substance: SAW PALMETTO
  14. THEOPHYLLINE [Concomitant]
     Active Substance: THEOPHYLLINE ANHYDROUS

REACTIONS (2)
  - Dizziness [None]
  - Somnolence [None]

NARRATIVE: CASE EVENT DATE: 20150826
